FAERS Safety Report 17800193 (Version 4)
Quarter: 2020Q3

REPORT INFORMATION
  Report Type: Report from Study
  Country: US (occurrence: US)
  Receive Date: 20200518
  Receipt Date: 20200731
  Transmission Date: 20201102
  Serious: Yes (Hospitalization)
  Sender: FDA-Public Use
  Company Number: US-ACTELION-A-NJ2020-205301

PATIENT
  Age: 76 Year
  Sex: Female
  Weight: 61.22 kg

DRUGS (11)
  1. SILDENAFIL. [Concomitant]
     Active Substance: SILDENAFIL
  2. POTASSIUM CHLORIDE. [Concomitant]
     Active Substance: POTASSIUM CHLORIDE
  3. DEXTROAMPHETAMINE SULFATE. [Concomitant]
     Active Substance: DEXTROAMPHETAMINE SULFATE
  4. PREDNISONE. [Concomitant]
     Active Substance: PREDNISONE
  5. PRILOSEC [Concomitant]
     Active Substance: OMEPRAZOLE MAGNESIUM
  6. SYMBICORT [Concomitant]
     Active Substance: BUDESONIDE\FORMOTEROL FUMARATE DIHYDRATE
  7. FUROSEMIDE. [Concomitant]
     Active Substance: FUROSEMIDE
  8. SPIRIVA [Concomitant]
     Active Substance: TIOTROPIUM BROMIDE MONOHYDRATE
  9. ALBUTEROL SULFATE. [Concomitant]
     Active Substance: ALBUTEROL SULFATE
  10. OPSUMIT [Suspect]
     Active Substance: MACITENTAN
     Indication: PULMONARY ARTERIAL HYPERTENSION
     Dosage: 10 MG, QD
     Route: 048
  11. NORCO [Concomitant]
     Active Substance: ACETAMINOPHEN\HYDROCODONE BITARTRATE

REACTIONS (25)
  - Viral infection [Unknown]
  - Chronic obstructive pulmonary disease [Unknown]
  - Carbon dioxide increased [Unknown]
  - Hypoxia [Unknown]
  - Haemoglobin decreased [Unknown]
  - Lymphocyte count decreased [Unknown]
  - Brain natriuretic peptide increased [Unknown]
  - Blood gases abnormal [Unknown]
  - Pneumonia [Unknown]
  - Respiration abnormal [Unknown]
  - Blood sodium decreased [Unknown]
  - PO2 decreased [Unknown]
  - Haematocrit decreased [Unknown]
  - Anion gap decreased [Unknown]
  - Pleural effusion [Unknown]
  - Red blood cell count decreased [Unknown]
  - Blood chloride decreased [Unknown]
  - Blood glucose increased [Unknown]
  - Hypotension [Unknown]
  - Dyspnoea [Recovering/Resolving]
  - Blood potassium decreased [Unknown]
  - Red cell distribution width increased [Unknown]
  - Pulmonary mass [Unknown]
  - Asthenia [Unknown]
  - Blood urea increased [Unknown]

NARRATIVE: CASE EVENT DATE: 20200411
